FAERS Safety Report 24706778 (Version 1)
Quarter: 2024Q4

REPORT INFORMATION
  Report Type: Spontaneous
  Country: US (occurrence: US)
  Receive Date: 20241206
  Receipt Date: 20241206
  Transmission Date: 20250114
  Serious: Yes (Hospitalization, Other)
  Sender: APOTEX
  Company Number: US-APOTEX-2024AP019304

PATIENT
  Age: 46 Year
  Sex: Female

DRUGS (2)
  1. EMTRICITABINE AND TENOFOVIR ALAFENAMIDE [Suspect]
     Active Substance: EMTRICITABINE\TENOFOVIR ALAFENAMIDE
     Indication: HIV infection
     Dosage: UNK
     Route: 065
  2. BICTEGRAVIR [Suspect]
     Active Substance: BICTEGRAVIR
     Indication: HIV infection
     Dosage: UNK
     Route: 065

REACTIONS (3)
  - Hepatitis cholestatic [Recovering/Resolving]
  - Acute hepatic failure [Not Recovered/Not Resolved]
  - Drug-induced liver injury [Recovering/Resolving]
